FAERS Safety Report 13541346 (Version 1)
Quarter: 2017Q2

REPORT INFORMATION
  Report Type: Spontaneous
  Country: US (occurrence: US)
  Receive Date: 20170512
  Receipt Date: 20170512
  Transmission Date: 20170830
  Serious: Yes (Other)
  Sender: FDA-Public Use
  Company Number: US-SA-2016SA094643

PATIENT
  Age: 59 Year
  Sex: Male

DRUGS (5)
  1. APIDRA SOLOSTAR [Suspect]
     Active Substance: INSULIN GLULISINE
     Indication: TYPE 1 DIABETES MELLITUS
     Dosage: TREATMENT START DATE: 3-4 YEARS DOSE:4 UNIT(S)
     Route: 065
  2. SOLOSTAR [Suspect]
     Active Substance: DEVICE
     Indication: TYPE 1 DIABETES MELLITUS
     Dosage: TREATMENT START DATE: 3-4 YEARS
  3. LEVEMIR [Concomitant]
     Active Substance: INSULIN DETEMIR
  4. SOLOSTAR [Suspect]
     Active Substance: DEVICE
     Indication: TYPE 1 DIABETES MELLITUS
     Dosage: TREATMENT START DATE: 3-4 YEARS
  5. APIDRA SOLOSTAR [Suspect]
     Active Substance: INSULIN GLULISINE
     Indication: TYPE 1 DIABETES MELLITUS
     Dosage: TREATMENT START DATE: 3-4 YEARS DOSE:4 UNIT(S)
     Route: 065

REACTIONS (3)
  - Weight increased [Unknown]
  - Diabetic coma [Unknown]
  - Device issue [Unknown]

NARRATIVE: CASE EVENT DATE: 201501
